FAERS Safety Report 8602954-6 (Version None)
Quarter: 2012Q3

REPORT INFORMATION
  Report Type: 
  Country: None (occurrence: None)
  Receive Date: 20120817
  Receipt Date: 20120807
  Transmission Date: 20120928
  Serious: Yes (Hospitalization)
  Sender: FDA-Public Use
  Company Number: US-BRISTOL-MYERS SQUIBB COMPANY-16844730

PATIENT
  Age: 47 Year
  Sex: Female

DRUGS (2)
  1. COUMADIN [Suspect]
  2. LETAIRIS [Suspect]
     Dosage: TABS
     Route: 048
     Dates: start: 20090119

REACTIONS (4)
  - COMPARTMENT SYNDROME [None]
  - INTERNATIONAL NORMALISED RATIO INCREASED [None]
  - OVERDOSE [None]
  - THROMBOSIS [None]
